FAERS Safety Report 5552609-X (Version None)
Quarter: 2007Q4

REPORT INFORMATION
  Report Type: 
  Country: None (occurrence: None)
  Receive Date: 20071212
  Receipt Date: 20070621
  Transmission Date: 20080405
  Serious: No
  Sender: FDA-Public Use
  Company Number: US-AMGEN-KDL230676

PATIENT
  Sex: Male

DRUGS (3)
  1. ENBREL [Suspect]
     Indication: RHEUMATOID ARTHRITIS
     Route: 058
     Dates: start: 20051215
  2. AZULFIDINE EN-TABS [Concomitant]
  3. PLAQUENIL [Concomitant]
     Route: 048

REACTIONS (2)
  - CONTUSION [None]
  - OEDEMA PERIPHERAL [None]
